FAERS Safety Report 9257686 (Version 2)
Quarter: 2013Q2

REPORT INFORMATION
  Report Type: Spontaneous
  Country: JP (occurrence: JP)
  Receive Date: 20130426
  Receipt Date: 20130516
  Transmission Date: 20140414
  Serious: Yes (Hospitalization, Other)
  Sender: FDA-Public Use
  Company Number: JP-PFIZER INC-2013116433

PATIENT
  Age: 66 Year
  Sex: 0

DRUGS (1)
  1. SUTENT [Suspect]
     Indication: RENAL CELL CARCINOMA
     Dosage: 12.5 MG, 3X/DAY
     Route: 048
     Dates: start: 20130325, end: 20130408

REACTIONS (3)
  - Subdural haematoma [Recovered/Resolved]
  - Fall [Unknown]
  - Platelet count decreased [Unknown]
